FAERS Safety Report 5116364-X (Version None)
Quarter: 2006Q3

REPORT INFORMATION
  Report Type: 
  Country: None (occurrence: None)
  Receive Date: 20060925
  Receipt Date: 20060913
  Transmission Date: 20061208
  Serious: Yes (Other)
  Sender: FDA-Public Use
  Company Number: 14778

PATIENT
  Age: 36 Year
  Sex: Male

DRUGS (3)
  1. METHOTREXATE [Suspect]
  2. BUSULFAN [Concomitant]
  3. FLUDARABINE [Concomitant]

REACTIONS (6)
  - ACUTE LYMPHOCYTIC LEUKAEMIA RECURRENT [None]
  - CEREBRAL CYST [None]
  - CONFUSIONAL STATE [None]
  - HEMIPARESIS [None]
  - LEUKAEMIC INFILTRATION BRAIN [None]
  - TRANSPLANT [None]
